FAERS Safety Report 24904363 (Version 1)
Quarter: 2025Q1

REPORT INFORMATION
  Report Type: Spontaneous
  Country: US (occurrence: None)
  Receive Date: 20250130
  Receipt Date: 20250130
  Transmission Date: 20250409
  Serious: Yes (Hospitalization)
  Sender: FDA-CTU
  Company Number: None

PATIENT
  Sex: Male
  Weight: 114 kg

DRUGS (1)
  1. CISPLATIN [Suspect]
     Active Substance: CISPLATIN

REACTIONS (3)
  - Electrolyte imbalance [None]
  - Blood creatinine abnormal [None]
  - Blood potassium abnormal [None]

NARRATIVE: CASE EVENT DATE: 20240417
